FAERS Safety Report 9527088 (Version 1)
Quarter: 2013Q3

REPORT INFORMATION
  Report Type: Spontaneous
  Country: US (occurrence: US)
  Receive Date: 20130916
  Receipt Date: 20130916
  Transmission Date: 20140515
  Serious: No
  Sender: FDA-Public Use
  Company Number: US-009507513-1309USA001761

PATIENT
  Sex: Female

DRUGS (4)
  1. MONTELUKAST SODIUM [Suspect]
     Dosage: UNK
     Route: 048
     Dates: start: 201304, end: 201309
  2. SINGULAIR [Suspect]
     Dosage: UNK
     Route: 048
     Dates: start: 199809, end: 201304
  3. SINGULAIR [Suspect]
     Dosage: UNK
     Route: 048
     Dates: start: 201309
  4. BENADRYL [Concomitant]

REACTIONS (1)
  - Allergy to animal [Recovering/Resolving]
